FAERS Safety Report 4359244-X (Version None)
Quarter: 2004Q2

REPORT INFORMATION
  Report Type: 
  Country: None (occurrence: None)
  Receive Date: 20040512
  Receipt Date: 20040427
  Transmission Date: 20050107
  Serious: Yes (Other)
  Sender: FDA-Public Use
  Company Number: USA040465949

PATIENT
  Age: 44 Year
  Sex: Female
  Weight: 80 kg

DRUGS (5)
  1. INSULIN [Suspect]
     Indication: DIABETES MELLITUS
     Dates: start: 19740101
  2. HUMALOG [Suspect]
     Indication: DIABETES MELLITUS
     Dosage: 48 U/DAY
     Dates: start: 20010101
  3. HUMULIN 70/30 [Suspect]
     Indication: DIABETES MELLITUS
     Dates: start: 20000101, end: 20010101
  4. LANTUS [Concomitant]
  5. NOVOLIN 70/30 [Concomitant]

REACTIONS (6)
  - BLINDNESS [None]
  - DEVICE FAILURE [None]
  - DIABETES MELLITUS INADEQUATE CONTROL [None]
  - DIABETIC RETINOPATHY [None]
  - INJECTION SITE HAEMORRHAGE [None]
  - PHARMACEUTICAL PRODUCT COMPLAINT [None]
